FAERS Safety Report 7002458-0 (Version None)
Quarter: 2010Q3

REPORT INFORMATION
  Report Type: 
  Country: None (occurrence: None)
  Receive Date: 20100920
  Receipt Date: 20100909
  Transmission Date: 20110219
  Serious: Yes (Other)
  Sender: FDA-Public Use
  Company Number: US-BRISTOL-MYERS SQUIBB COMPANY-15290315

PATIENT
  Sex: Male
  Weight: 2 kg

DRUGS (1)
  1. AMPICILLIN SODIUM [Suspect]
     Route: 064

REACTIONS (13)
  - BONE DISORDER [None]
  - CAESAREAN SECTION [None]
  - CONGENITAL SYPHILIS [None]
  - DYSPNOEA [None]
  - FOETAL HEART RATE DECELERATION [None]
  - LIVER FUNCTION TEST ABNORMAL [None]
  - MATERNAL DRUGS AFFECTING FOETUS [None]
  - PLACENTAL DISORDER [None]
  - PREMATURE BABY [None]
  - SMALL FOR DATES BABY [None]
  - THROMBOCYTOPENIA [None]
  - UMBILICAL CORD VASCULAR DISORDER [None]
  - VASCULITIS [None]
